FAERS Safety Report 6766622-8 (Version None)
Quarter: 2010Q2

REPORT INFORMATION
  Report Type: 
  Country: None (occurrence: None)
  Receive Date: 20100611
  Receipt Date: 20100608
  Transmission Date: 20101027
  Serious: Yes (Hospitalization)
  Sender: FDA-Public Use
  Company Number: BR-BRISTOL-MYERS SQUIBB COMPANY-15140221

PATIENT
  Age: 76 Year
  Sex: Male
  Weight: 66 kg

DRUGS (6)
  1. CARBOPLATIN [Suspect]
     Indication: NON-SMALL CELL LUNG CANCER
     Route: 042
     Dates: start: 20100505, end: 20100511
  2. PACLITAXEL [Suspect]
     Indication: NON-SMALL CELL LUNG CANCER
     Route: 042
     Dates: start: 20100505, end: 20100511
  3. FLUOXETINE HCL [Concomitant]
     Indication: DEPRESSION
     Dates: start: 20100125
  4. CIPROFLOXACIN HCL [Concomitant]
     Indication: URINARY TRACT INFECTION
     Dates: start: 20100427, end: 20100504
  5. DEXAMETHASONE [Concomitant]
     Indication: MYALGIA
     Dates: start: 20100505, end: 20100509
  6. DEXAMETHASONE [Concomitant]
     Indication: NAUSEA
     Dates: start: 20100505, end: 20100509

REACTIONS (1)
  - RENAL FAILURE [None]
